FAERS Safety Report 13530134 (Version 1)
Quarter: 2017Q2

REPORT INFORMATION
  Report Type: Spontaneous
  Country: US (occurrence: US)
  Receive Date: 20170509
  Receipt Date: 20170509
  Transmission Date: 20170830
  Serious: No
  Sender: FDA-Public Use
  Company Number: US-UCBSA-2016035129

PATIENT
  Age: 73 Year
  Sex: Male

DRUGS (2)
  1. NEUPRO [Suspect]
     Active Substance: ROTIGOTINE
     Indication: PARKINSON^S DISEASE
     Dosage: 2 MG, ONCE DAILY (QD)
     Route: 062
     Dates: start: 20160720, end: 2016
  2. NEUPRO [Suspect]
     Active Substance: ROTIGOTINE
     Indication: DYSTONIA
     Dosage: 2 MG, 2X/DAY (BID)
     Route: 062
     Dates: start: 20160803, end: 201608

REACTIONS (1)
  - Drug ineffective [Unknown]

NARRATIVE: CASE EVENT DATE: 20160720
